FAERS Safety Report 24830637 (Version 1)
Quarter: 2025Q1

REPORT INFORMATION
  Report Type: Spontaneous
  Country: US (occurrence: None)
  Receive Date: 20250109
  Receipt Date: 20250109
  Transmission Date: 20250408
  Serious: Yes (Life-Threatening)
  Sender: FDA-CTU
  Company Number: None

PATIENT
  Age: 76 Year
  Sex: Female
  Weight: 75.6 kg

DRUGS (12)
  1. MOUNJARO [Suspect]
     Active Substance: TIRZEPATIDE
     Indication: Diabetes mellitus
  2. fluticasone/salmeterol inhaler (generic advair) [Concomitant]
  3. NOVOLOG [Concomitant]
     Active Substance: INSULIN ASPART
  4. LEVOTHYROXINE [Concomitant]
     Active Substance: LEVOTHYROXINE
  5. vitamin d 50K unit [Concomitant]
  6. CARVEDILOL [Concomitant]
     Active Substance: CARVEDILOL
  7. LOSARTAN [Concomitant]
     Active Substance: LOSARTAN
  8. ATORVASTATIN [Concomitant]
     Active Substance: ATORVASTATIN
  9. MONTELUKAST [Concomitant]
     Active Substance: MONTELUKAST
  10. CLONAZEPAM [Concomitant]
     Active Substance: CLONAZEPAM
  11. ALBUTEROL [Concomitant]
     Active Substance: ALBUTEROL
  12. ADDERALL [Concomitant]
     Active Substance: AMPHETAMINE ASPARTATE\AMPHETAMINE SULFATE\DEXTROAMPHETAMINE SACCHARATE\DEXTROAMPHETAMINE SULFATE

REACTIONS (7)
  - Rash [None]
  - Rash erythematous [None]
  - Urticaria [None]
  - Swollen tongue [None]
  - Dyspnoea [None]
  - Blood glucose increased [None]
  - Blood pressure decreased [None]

NARRATIVE: CASE EVENT DATE: 20250105
